FAERS Safety Report 5152009-0 (Version None)
Quarter: 2006Q4

REPORT INFORMATION
  Report Type: 
  Country: None (occurrence: None)
  Receive Date: 20061116
  Receipt Date: 20061107
  Transmission Date: 20070319
  Serious: Yes (Death)
  Sender: FDA-Public Use
  Company Number: US-JNJFOC-20061101638

PATIENT
  Sex: Female

DRUGS (1)
  1. LEVAQUIN [Suspect]
     Indication: SEPSIS
     Route: 042
     Dates: start: 20061106, end: 20061106

REACTIONS (2)
  - DEATH [None]
  - SEPSIS [None]
